FAERS Safety Report 4366589-6 (Version None)
Quarter: 2004Q2

REPORT INFORMATION
  Report Type: 
  Country: None (occurrence: None)
  Receive Date: 20040527
  Receipt Date: 20040420
  Transmission Date: 20050107
  Serious: Yes (Hospitalization, Congenital Anomaly)
  Sender: FDA-Public Use
  Company Number: FR-GLAXOSMITHKLINE-B0330620A

PATIENT
  Sex: Female
  Weight: 1.6 kg

DRUGS (9)
  1. ZIDOVUDINE [Suspect]
     Indication: ANTIVIRAL PROPHYLAXIS
     Dosage: 3MG FOUR TIMES PER DAY
     Route: 048
     Dates: start: 20031228, end: 20040112
  2. ZIDOVUDINE [Suspect]
     Indication: HIV INFECTION
     Dosage: 500MG PER DAY
     Dates: start: 20031128, end: 20031228
  3. STAVUDINE [Concomitant]
     Indication: ANTIVIRAL PROPHYLAXIS
     Route: 048
     Dates: start: 20040114, end: 20040219
  4. DIDANOSINE [Concomitant]
     Indication: HIV INFECTION
     Dates: start: 20031128, end: 20031228
  5. KALETRA [Concomitant]
     Indication: HIV INFECTION
     Dates: start: 20031128, end: 20031228
  6. RIMIFON [Concomitant]
     Indication: TUBERCULOSIS
     Dates: start: 20031128, end: 20031228
  7. MYAMBUTOL [Concomitant]
     Indication: TUBERCULOSIS
     Dates: start: 20031128, end: 20031228
  8. ANSATIPINE [Concomitant]
     Indication: TUBERCULOSIS
     Dates: start: 20031128, end: 20031228
  9. LOXEN [Concomitant]
     Route: 042

REACTIONS (4)
  - ANAEMIA NEONATAL [None]
  - DRUG EXPOSURE DURING PREGNANCY [None]
  - GLUCOSE-6-PHOSPHATE DEHYDROGENASE DEFICIENCY [None]
  - PREMATURE BABY [None]
